FAERS Safety Report 10289834 (Version 1)
Quarter: 2014Q3

REPORT INFORMATION
  Report Type: Spontaneous
  Country: IT (occurrence: IT)
  Receive Date: 20140710
  Receipt Date: 20140710
  Transmission Date: 20150326
  Serious: Yes (Other)
  Sender: FDA-Public Use
  Company Number: IT-TEVA-492380ISR

PATIENT
  Age: 63 Year
  Sex: Male

DRUGS (4)
  1. GABAPENTIN. [Suspect]
     Active Substance: GABAPENTIN
     Indication: BIPOLAR DISORDER
     Dosage: 1100 MILLIGRAM DAILY; 1100 MG DAILY
     Route: 048
     Dates: start: 20140416, end: 20140520
  2. RISPERDAL [Suspect]
     Active Substance: RISPERIDONE
     Indication: BIPOLAR DISORDER
     Dosage: 3 MILLIGRAM DAILY; 3 MG DAILY
     Route: 048
     Dates: start: 20140416, end: 20140605
  3. HALDOL [Suspect]
     Active Substance: HALOPERIDOL
     Indication: BIPOLAR DISORDER
     Dosage: 5 MILLIGRAM DAILY; 5 MG DAILY
     Route: 048
     Dates: start: 20140521, end: 20140605
  4. GABAPENTIN. [Suspect]
     Active Substance: GABAPENTIN
     Indication: BIPOLAR DISORDER
     Dosage: 1500 MG DAILY
     Route: 048
     Dates: start: 20140521, end: 20140605

REACTIONS (14)
  - Bradykinesia [Unknown]
  - Psychomotor hyperactivity [Unknown]
  - Adverse reaction [Unknown]
  - Dysarthria [Unknown]
  - Incorrect dose administered [Unknown]
  - Oromandibular dystonia [Unknown]
  - Dysphagia [Unknown]
  - Weight decreased [Unknown]
  - Tongue discolouration [Unknown]
  - Extrapyramidal disorder [Unknown]
  - Off label use [Unknown]
  - Insomnia [Unknown]
  - Saccadic eye movement [Unknown]
  - Oral infection [Unknown]

NARRATIVE: CASE EVENT DATE: 20140523
